FAERS Safety Report 18198929 (Version 1)
Quarter: 2020Q3

REPORT INFORMATION
  Report Type: Spontaneous
  Country: TR (occurrence: TR)
  Receive Date: 20200826
  Receipt Date: 20200826
  Transmission Date: 20201103
  Serious: Yes (Death)
  Sender: FDA-Public Use
  Company Number: TR-HQ SPECIALTY-TR-2020INT000100

PATIENT
  Age: 75 Year
  Sex: Male

DRUGS (10)
  1. COLISTIN [Suspect]
     Active Substance: COLISTIN
     Indication: PSEUDOMONAS INFECTION
     Dosage: 56.25 MG, BID
     Route: 042
  2. IMIPENEM AND CILASTATIN [Suspect]
     Active Substance: CILASTATIN SODIUM\IMIPENEM
     Indication: ENTEROCOCCAL INFECTION
  3. ERTAPENEM. [Suspect]
     Active Substance: ERTAPENEM SODIUM
     Indication: ANTIBIOTIC THERAPY
     Dosage: 1000 MG, QD
     Route: 042
  4. TIGECYCLINE. [Suspect]
     Active Substance: TIGECYCLINE
     Indication: KLEBSIELLA INFECTION
     Dosage: LOADING DOSE
     Route: 042
  5. IMIPENEM AND CILASTATIN [Suspect]
     Active Substance: CILASTATIN SODIUM\IMIPENEM
     Indication: KLEBSIELLA INFECTION
  6. COLISTIN [Suspect]
     Active Substance: COLISTIN
     Dosage: 50 MG, BID; ROUTE CHANGE DUE TO WORSENING RENAL FUNCTION
     Route: 055
  7. TIGECYCLINE. [Suspect]
     Active Substance: TIGECYCLINE
     Indication: ENTEROCOCCAL INFECTION
     Dosage: 50 MG, BID
     Route: 042
  8. TEICOPLANIN [Suspect]
     Active Substance: TEICOPLANIN
     Indication: KLEBSIELLA INFECTION
     Dosage: 12 MG/KG, EVERY 72 HOURS AFTER LOADING DOSE
  9. TEICOPLANIN [Suspect]
     Active Substance: TEICOPLANIN
     Indication: ENTEROCOCCAL INFECTION
  10. IMIPENEM AND CILASTATIN [Suspect]
     Active Substance: CILASTATIN SODIUM\IMIPENEM
     Indication: PSEUDOMONAS INFECTION
     Dosage: 250 MG, BID
     Route: 042

REACTIONS (4)
  - Leukocytosis [Unknown]
  - Renal impairment [Unknown]
  - Drug hypersensitivity [Unknown]
  - Hypotension [Fatal]
